FAERS Safety Report 16720499 (Version 2)
Quarter: 2019Q4

REPORT INFORMATION
  Report Type: Spontaneous
  Country: FR (occurrence: FR)
  Receive Date: 20190820
  Receipt Date: 20191209
  Transmission Date: 20200122
  Serious: Yes (Hospitalization)
  Sender: FDA-Public Use
  Company Number: FR-MYLANLABS-2019M1076919

PATIENT
  Age: 83 Year
  Sex: Male
  Weight: 87 kg

DRUGS (2)
  1. CARBOPLATIN. [Suspect]
     Active Substance: CARBOPLATIN
     Indication: LUNG CANCER METASTATIC
     Dosage: 427.18 MILLIGRAM, Q3W
     Route: 034
     Dates: start: 20190212, end: 20190305
  2. ETOPOSIDE. [Suspect]
     Active Substance: ETOPOSIDE
     Indication: LUNG CANCER METASTATIC
     Dosage: 480 MILLIGRAM, Q3W
     Route: 034
     Dates: start: 20190212, end: 20190306

REACTIONS (2)
  - Administration site extravasation [Recovered/Resolved]
  - Dyspnoea [Not Recovered/Not Resolved]

NARRATIVE: CASE EVENT DATE: 201902
